FAERS Safety Report 4525047-6 (Version None)
Quarter: 2004Q4

REPORT INFORMATION
  Report Type: 
  Country: None (occurrence: None)
  Receive Date: 20041117
  Receipt Date: 20031030
  Transmission Date: 20050328
  Serious: Yes (Other)
  Sender: FDA-Public Use
  Company Number: C2003-2913.01

PATIENT
  Age: 29 Year
  Sex: Male

DRUGS (7)
  1. CLOZAPINE [Suspect]
     Indication: DRUG ABUSER
     Dosage: 800MG Q HS, ORAL
     Route: 048
     Dates: start: 20010901, end: 20031014
  2. CLOZAPINE [Suspect]
     Indication: SCHIZOPHRENIA
     Dosage: 800MG Q HS, ORAL
     Route: 048
     Dates: start: 20010901, end: 20031014
  3. CLOZAPINE [Suspect]
     Indication: DRUG ABUSER
     Dosage: 800MG Q HS, ORAL
     Route: 048
     Dates: end: 20031028
  4. CLOZAPINE [Suspect]
     Indication: SCHIZOPHRENIA
     Dosage: 800MG Q HS, ORAL
     Route: 048
     Dates: end: 20031028
  5. DIVALPROEX SODIUM [Concomitant]
  6. FLUVOXAMINE [Concomitant]
  7. RISPERIDONE [Concomitant]

REACTIONS (2)
  - DRUG EFFECT DECREASED [None]
  - NEUTROPHIL COUNT DECREASED [None]
